FAERS Safety Report 19425808 (Version 2)
Quarter: 2021Q2

REPORT INFORMATION
  Report Type: Spontaneous
  Country: US (occurrence: US)
  Receive Date: 20210617
  Receipt Date: 20210623
  Transmission Date: 20210717
  Serious: No
  Sender: FDA-Public Use
  Company Number: US-SA-2021SA199690

PATIENT
  Sex: Female

DRUGS (16)
  1. PREDNISOLONE ACETATE. [Concomitant]
     Active Substance: PREDNISOLONE ACETATE
  2. BUPROPION. [Concomitant]
     Active Substance: BUPROPION
  3. VITAMIN D3 [Concomitant]
     Active Substance: CHOLECALCIFEROL
  4. GABAPENTIN. [Concomitant]
     Active Substance: GABAPENTIN
  5. ADRENALIN (EPINEPHRINE) [Concomitant]
     Active Substance: EPINEPHRINE
  6. DUPIXENT [Suspect]
     Active Substance: DUPILUMAB
     Indication: DERMATITIS ATOPIC
     Dosage: 300 MG, QOW
     Route: 058
  7. DULERA [Concomitant]
     Active Substance: FORMOTEROL FUMARATE DIHYDRATE\MOMETASONE FUROATE
  8. EPIPEN [Concomitant]
     Active Substance: EPINEPHRINE
  9. MAGNESIUM [Concomitant]
     Active Substance: MAGNESIUM
  10. HYDROCORTISONE. [Concomitant]
     Active Substance: HYDROCORTISONE
  11. LORATADINE. [Concomitant]
     Active Substance: LORATADINE
  12. BENADRYL [Concomitant]
     Active Substance: DIPHENHYDRAMINE HYDROCHLORIDE
  13. MOXIFLOXACIN. [Concomitant]
     Active Substance: MOXIFLOXACIN
  14. DUPIXENT [Suspect]
     Active Substance: DUPILUMAB
     Indication: ASTHMA
     Dosage: 300 MG, QOW
     Route: 058
     Dates: start: 201705
  15. DEXTROAMPHETAMINE [DEXAMFETAMINE] [Concomitant]
     Active Substance: DEXTROAMPHETAMINE
  16. ESZOPICLONE. [Concomitant]
     Active Substance: ESZOPICLONE

REACTIONS (1)
  - Surgery [Unknown]
